FAERS Safety Report 7751629-4 (Version None)
Quarter: 2011Q3

REPORT INFORMATION
  Report Type: 
  Country: None (occurrence: None)
  Receive Date: 20110914
  Receipt Date: 20110908
  Transmission Date: 20111222
  Serious: Yes (Hospitalization, Other)
  Sender: FDA-Public Use
  Company Number: US-PFIZER INC-2010106738

PATIENT
  Sex: Female
  Weight: 71 kg

DRUGS (1)
  1. LYRICA [Suspect]
     Dosage: 600 MG
     Route: 048
     Dates: start: 20100822

REACTIONS (2)
  - CONVULSION [None]
  - DRUG ABUSE [None]
